FAERS Safety Report 23849850 (Version 4)
Quarter: 2024Q3

REPORT INFORMATION
  Report Type: Spontaneous
  Country: PT (occurrence: PT)
  Receive Date: 20240513
  Receipt Date: 20240904
  Transmission Date: 20241016
  Serious: Yes (Other)
  Sender: NOVARTIS
  Company Number: PT-002147023-NVSC2024PT097572

PATIENT
  Age: 21 Year
  Sex: Female

DRUGS (2)
  1. KESIMPTA [Suspect]
     Active Substance: OFATUMUMAB
     Indication: Relapsing-remitting multiple sclerosis
     Dosage: 20 MG, QMO
     Route: 058
     Dates: start: 20230101, end: 20240426
  2. KESIMPTA [Suspect]
     Active Substance: OFATUMUMAB
     Dosage: UNK
     Route: 065
     Dates: start: 202305, end: 2024

REACTIONS (10)
  - Spinal cord disorder [Recovered/Resolved]
  - Nervous system disorder [Recovered/Resolved]
  - Central nervous system lesion [Recovered/Resolved]
  - Multiple sclerosis relapse [Recovered/Resolved]
  - Multiple sclerosis relapse [Recovered/Resolved]
  - Motor dysfunction [Recovered/Resolved]
  - Sensory loss [Recovered/Resolved]
  - Multiple sclerosis relapse [Unknown]
  - Sensory loss [Unknown]
  - Treatment failure [Unknown]

NARRATIVE: CASE EVENT DATE: 20230301
